FAERS Safety Report 4386788-7 (Version None)
Quarter: 2004Q2

REPORT INFORMATION
  Report Type: 
  Country: None (occurrence: None)
  Receive Date: 20040607
  Receipt Date: 20030527
  Transmission Date: 20050107
  Serious: Yes (Other)
  Sender: FDA-Public Use
  Company Number: 262484

PATIENT
  Sex: Female
  Weight: 3.4 kg

DRUGS (5)
  1. ISOTRETINOIN [Suspect]
     Indication: ACNE
     Dosage: 20 MG 1 PER DAY ORAL
     Route: 048
     Dates: start: 20000715, end: 20010528
  2. AZATHIOPRINE [Concomitant]
  3. BUDESONIDE (BUDESONIDE) [Concomitant]
  4. VALTREX [Concomitant]
  5. INTAL [Concomitant]

REACTIONS (2)
  - ADVERSE EVENT [None]
  - NORMAL NEWBORN [None]
